FAERS Safety Report 5407007-6 (Version None)
Quarter: 2007Q3

REPORT INFORMATION
  Report Type: 
  Country: None (occurrence: None)
  Receive Date: 20070803
  Receipt Date: 20070803
  Transmission Date: 20080115
  Serious: Yes (Hospitalization)
  Sender: FDA-Public Use
  Company Number: None

PATIENT
  Age: 57 Year
  Sex: Male

DRUGS (3)
  1. LITHIUM CARBONATE [Suspect]
     Indication: BIPOLAR DISORDER
     Dosage: 300MG BID PO
     Route: 048
     Dates: start: 19990607, end: 20070514
  2. LITHIUM CARBONATE [Suspect]
     Indication: MANIA
     Dosage: 300MG BID PO
     Route: 048
     Dates: start: 19990607, end: 20070514
  3. DIAZEPAM [Suspect]
     Dosage: 10MG PRN PO
     Route: 048
     Dates: start: 20030521

REACTIONS (1)
  - MENTAL STATUS CHANGES [None]
